FAERS Safety Report 17787212 (Version 2)
Quarter: 2020Q2

REPORT INFORMATION
  Report Type: Spontaneous
  Country: US (occurrence: US)
  Receive Date: 20200514
  Receipt Date: 20200521
  Transmission Date: 20200714
  Serious: No
  Sender: FDA-Public Use
  Company Number: US-TEVA-2020-US-1235766

PATIENT
  Age: 80 Year
  Sex: Male

DRUGS (1)
  1. FLUOCINONIDE TEVA [Suspect]
     Active Substance: FLUOCINONIDE
     Indication: PRECANCEROUS CONDITION
     Route: 061
     Dates: start: 2018

REACTIONS (2)
  - Drug ineffective [Unknown]
  - Product substitution issue [Unknown]
